FAERS Safety Report 14305120 (Version 1)
Quarter: 2017Q4

REPORT INFORMATION
  Report Type: Spontaneous
  Country: JP (occurrence: JP)
  Receive Date: 20171219
  Receipt Date: 20171219
  Transmission Date: 20180321
  Serious: Yes (Hospitalization, Other)
  Sender: FDA-Public Use
  Company Number: JP-OTSUKA-011262

PATIENT
  Age: 66 Year
  Sex: Male

DRUGS (10)
  1. PARKISTON [Suspect]
     Active Substance: CARBIDOPA\LEVODOPA
     Dosage: 100 MG, QD
     Route: 065
     Dates: start: 20101013
  2. HIBERNA [Suspect]
     Active Substance: PROMETHAZINE HYDROCHLORIDE
     Indication: HALLUCINATION
     Dosage: 30 MG, QD
     Route: 065
     Dates: start: 20091024, end: 20100916
  3. ABILIFY [Suspect]
     Active Substance: ARIPIPRAZOLE
     Indication: DELUSION
     Dosage: 2.5 MG, QD
     Route: 065
     Dates: start: 20101015
  4. ABILIFY [Suspect]
     Active Substance: ARIPIPRAZOLE
     Indication: HALLUCINATION
     Dosage: 3 MG, QD
     Route: 065
     Dates: start: 20071024, end: 20100916
  5. HIBERNA [Suspect]
     Active Substance: PROMETHAZINE HYDROCHLORIDE
     Indication: DELUSION
  6. HALCION [Suspect]
     Active Substance: TRIAZOLAM
     Indication: INSOMNIA
     Dosage: 0.25 MG, QD
     Route: 065
     Dates: start: 20100813, end: 20100916
  7. PARKISTON [Suspect]
     Active Substance: CARBIDOPA\LEVODOPA
     Indication: PARKINSONISM
     Dosage: 100 MG, QD
     Route: 065
     Dates: start: 20091030, end: 20100916
  8. MYSLEE [Suspect]
     Active Substance: ZOLPIDEM TARTRATE
     Indication: INSOMNIA
     Dosage: 10 MG, QD
     Route: 065
     Dates: start: 20091020, end: 20100916
  9. QUAZEPAM. [Suspect]
     Active Substance: QUAZEPAM
     Indication: INSOMNIA
     Dosage: 15 MG, QD
     Route: 065
     Dates: start: 20071121, end: 20100916
  10. AKINETON [Suspect]
     Active Substance: BIPERIDEN HYDROCHLORIDE
     Indication: PARKINSONISM
     Dosage: 2 MG, QD
     Route: 065
     Dates: end: 20100916

REACTIONS (3)
  - Pneumonia [Unknown]
  - Drug-induced liver injury [Recovered/Resolved]
  - Dysphagia [Unknown]

NARRATIVE: CASE EVENT DATE: 20100507
